FAERS Safety Report 11273992 (Version 2)
Quarter: 2015Q4

REPORT INFORMATION
  Report Type: Report from Study
  Country: AU (occurrence: AU)
  Receive Date: 20150715
  Receipt Date: 20151015
  Transmission Date: 20160304
  Serious: Yes (Other)
  Sender: FDA-Public Use
  Company Number: PHHY2015AU082217

PATIENT
  Age: 51 Year
  Sex: Female
  Weight: 141 kg

DRUGS (14)
  1. ATORVASTATIN [Concomitant]
     Active Substance: ATORVASTATIN
     Indication: BLOOD CHOLESTEROL INCREASED
  2. PROMETHAZINE [Concomitant]
     Active Substance: PROMETHAZINE\PROMETHAZINE HYDROCHLORIDE
     Indication: RASH
     Dosage: 25 MG, QD
     Route: 048
     Dates: start: 20150904
  3. SODIUM VALPROATE [Concomitant]
     Active Substance: VALPROATE SODIUM
     Indication: MOOD ALTERED
     Dosage: 700 MG, BID
     Route: 048
  4. PANTOPRAZOLE [Concomitant]
     Active Substance: PANTOPRAZOLE SODIUM
     Indication: GASTROOESOPHAGEAL REFLUX DISEASE
     Dosage: 40 MG, QD
     Route: 048
     Dates: start: 20150624
  5. BENZTROPINE [Concomitant]
     Active Substance: BENZTROPINE
     Indication: TREMOR
     Dosage: 6 MG,(2 MG MANE, 1 MG MIDDAY, 1MG 17:00, 2 MG NOCTE)
     Route: 048
     Dates: start: 20150730
  6. PERINDOPRIL ARGININE [Concomitant]
     Active Substance: PERINDOPRIL ARGININE
     Indication: CARDIAC DISORDER
  7. CLOZARIL [Suspect]
     Active Substance: CLOZAPINE
     Indication: SCHIZOPHRENIA
     Dosage: 200 MG, QD
     Route: 048
     Dates: start: 20020604, end: 201506
  8. PARACETAMOL [Concomitant]
     Active Substance: ACETAMINOPHEN
     Indication: PAIN
     Dosage: 1 G, QID
     Route: 048
     Dates: start: 20150624
  9. CLOZARIL [Suspect]
     Active Substance: CLOZAPINE
     Indication: PSYCHOTIC DISORDER
  10. ASPIRIN. [Concomitant]
     Active Substance: ASPIRIN
     Indication: CARDIOVASCULAR EVENT PROPHYLAXIS
     Dosage: 100 MG, QD
     Route: 048
  11. ATORVASTATIN [Concomitant]
     Active Substance: ATORVASTATIN
     Indication: CARDIOVASCULAR EVENT PROPHYLAXIS
     Dosage: 40 MG, QD
     Route: 048
  12. TRAMADOL. [Concomitant]
     Active Substance: TRAMADOL
     Indication: PAIN
     Dosage: 100 MG, QD
     Route: 048
  13. FLUOXETINE [Concomitant]
     Active Substance: FLUOXETINE HYDROCHLORIDE
     Indication: MOOD ALTERED
     Dosage: 20 MG, QD
     Route: 048
  14. PERINDOPRIL ARGININE [Concomitant]
     Active Substance: PERINDOPRIL ARGININE
     Indication: HYPERTENSION
     Dosage: 2.5 MG, QD
     Route: 048
     Dates: start: 20150624

REACTIONS (12)
  - Antipsychotic drug level below therapeutic [Unknown]
  - Delusion [Recovering/Resolving]
  - Pneumothorax [Unknown]
  - White blood cell count increased [Not Recovered/Not Resolved]
  - Mental disorder [Unknown]
  - Red blood cell count increased [Recovered/Resolved]
  - Red blood cell count increased [Recovered/Resolved]
  - Vomiting [Unknown]
  - Neutrophil count increased [Recovered/Resolved]
  - Red blood cell count increased [Unknown]
  - Neutrophil count increased [Unknown]
  - Diarrhoea [Unknown]

NARRATIVE: CASE EVENT DATE: 20150511
